FAERS Safety Report 7799283-X (Version None)
Quarter: 2011Q4

REPORT INFORMATION
  Report Type: 
  Country: None (occurrence: None)
  Receive Date: 20111006
  Receipt Date: 20110922
  Transmission Date: 20120403
  Serious: Yes (Other)
  Sender: FDA-Public Use
  Company Number: US-BAYER-2011-092187

PATIENT
  Age: 73 Year
  Sex: Female

DRUGS (4)
  1. VITAMIN TAB [Concomitant]
  2. ALEVE (CAPLET) [Suspect]
     Indication: PAIN IN EXTREMITY
     Dosage: UNK
     Dates: start: 20110606, end: 20110611
  3. METHOCARBAMOL [Suspect]
     Indication: PAIN IN EXTREMITY
     Dosage: DAILY DOSE: 3 TABLETS DAILY
     Route: 048
     Dates: start: 20110606, end: 20110611
  4. ASPIRIN [Suspect]

REACTIONS (2)
  - HAEMATOCHEZIA [None]
  - MUSCULAR WEAKNESS [None]
